FAERS Safety Report 17338077 (Version 2)
Quarter: 2020Q1

REPORT INFORMATION
  Report Type: Spontaneous
  Country: JP (occurrence: JP)
  Receive Date: 20200129
  Receipt Date: 20200224
  Transmission Date: 20200409
  Serious: Yes (Other)
  Sender: FDA-Public Use
  Company Number: JP-TEVA-2020-JP-1177572

PATIENT
  Age: 46 Year
  Sex: Female

DRUGS (2)
  1. BENDAMUSTINE HYDROCHLORIDE. [Suspect]
     Active Substance: BENDAMUSTINE HYDROCHLORIDE
     Indication: B-CELL LYMPHOMA
     Dosage: CYCLIC (6TH CYCLE)
     Route: 042
  2. RITUXIMAB. [Suspect]
     Active Substance: RITUXIMAB
     Indication: B-CELL LYMPHOMA
     Dosage: 375 MG/M2, CYCLIC (6TH CYCLE)
     Route: 041

REACTIONS (8)
  - White blood cell count decreased [Unknown]
  - Renal failure [Unknown]
  - Oedema [Unknown]
  - Cellulitis [Unknown]
  - Infusion related reaction [Unknown]
  - Rash [Unknown]
  - Constipation [Unknown]
  - Lymphocyte count decreased [Unknown]
